FAERS Safety Report 6475647-1 (Version None)
Quarter: 2009Q4

REPORT INFORMATION
  Report Type: 
  Country: None (occurrence: None)
  Receive Date: 20091204
  Receipt Date: 20091127
  Transmission Date: 20100525
  Serious: Yes (Hospitalization)
  Sender: FDA-Public Use
  Company Number: CA-PFIZER INC-2009303458

PATIENT
  Age: 80 Year
  Sex: Male
  Weight: 68.934 kg

DRUGS (25)
  1. BLINDED *NO SUBJECT DRUG [Suspect]
     Indication: PROSTATE CANCER
     Dosage: UNK
     Route: 048
     Dates: start: 20091015
  2. BLINDED *PLACEBO [Suspect]
     Indication: PROSTATE CANCER
     Dosage: UNK
     Route: 048
     Dates: start: 20091015
  3. BLINDED SUNITINIB MALATE [Suspect]
     Indication: PROSTATE CANCER
     Dosage: UNK
     Route: 048
     Dates: start: 20091015
  4. PREDNISONE [Suspect]
     Indication: PROSTATE CANCER
     Dosage: UNK
     Route: 048
     Dates: start: 20091015
  5. NOVO-ACEBUTOLOL [Concomitant]
     Dosage: UNK
  6. ISMN - SLOW RELEASE 'APO' [Concomitant]
     Dosage: UNK
  7. PREVACID LA [Concomitant]
     Dosage: UNK
  8. SIMVASTATIN 'NOVO' [Concomitant]
     Dosage: UNK
  9. NITRO SPRAY 'GEN' [Concomitant]
     Dosage: UNK
  10. FLOVENT [Concomitant]
     Dosage: UNK
  11. SALBUTAMOL INHALANT ^RATIOPHARM^ [Concomitant]
     Dosage: UNK
  12. FLUTICASONE [Concomitant]
     Dosage: UNK
  13. M-ESLON [Concomitant]
     Dosage: UNK
  14. CELEBREX [Concomitant]
     Dosage: UNK
  15. ACETYLSALICYLIC ACID ENTERIC COATED 'PMS' [Concomitant]
     Dosage: UNK
  16. CALCIUM WITH VITAMIN D [Concomitant]
     Dosage: UNK
  17. SYNTHROID [Concomitant]
     Dosage: UNK
  18. APO-FUROSEMIDE [Concomitant]
     Dosage: UNK
  19. ACETAMINOPHEN [Concomitant]
     Dosage: UNK
  20. SENNOSIDES [Concomitant]
     Dosage: UNK
  21. STATEX [Concomitant]
     Dosage: UNK
  22. DOCUSATE [Concomitant]
     Dosage: UNK
  23. PHOSPHATE-SANDOZ [Concomitant]
     Dosage: UNK
  24. ZOMETA [Concomitant]
     Dosage: UNK
  25. GRAVOL TAB [Concomitant]
     Dosage: UNK

REACTIONS (1)
  - DIVERTICULAR PERFORATION [None]
